FAERS Safety Report 8424956-5 (Version None)
Quarter: 2012Q2

REPORT INFORMATION
  Report Type: 
  Country: None (occurrence: None)
  Receive Date: 20120611
  Receipt Date: 20120601
  Transmission Date: 20120825
  Serious: Yes (Hospitalization)
  Sender: FDA-Public Use
  Company Number: US-UCBSA-058830

PATIENT
  Age: 56 Year
  Sex: Male

DRUGS (2)
  1. CIMZIA [Suspect]
     Indication: CROHN'S DISEASE
     Dates: start: 20120101
  2. CIMZIA [Suspect]
     Dates: end: 20120201

REACTIONS (1)
  - RECTAL HAEMORRHAGE [None]
